FAERS Safety Report 23219651 (Version 2)
Quarter: 2024Q1

REPORT INFORMATION
  Report Type: Spontaneous
  Country: US (occurrence: US)
  Receive Date: 20231122
  Receipt Date: 20240227
  Transmission Date: 20240410
  Serious: No
  Sender: FDA-Public Use
  Company Number: US-AVADEL CNS PHARMACEUTICALS, LLC-2023AVA00329

PATIENT
  Sex: Female

DRUGS (9)
  1. LUMRYZ [Suspect]
     Active Substance: SODIUM OXYBATE
     Indication: Narcolepsy
     Dosage: UNK
     Route: 048
     Dates: start: 20231012, end: 20231018
  2. LUMRYZ [Suspect]
     Active Substance: SODIUM OXYBATE
     Indication: Narcolepsy
     Dosage: 6 G, 1X/DAY
     Route: 048
     Dates: start: 20231019, end: 2023
  3. LUMRYZ [Suspect]
     Active Substance: SODIUM OXYBATE
     Indication: Narcolepsy
     Dosage: 7.5 G, 1X/DAY AT NIGHT
     Route: 048
     Dates: start: 2023, end: 2023
  4. IRON [Concomitant]
     Active Substance: IRON
  5. IBUPROFEN [Concomitant]
     Active Substance: IBUPROFEN
  6. GABAPENTIN [Concomitant]
     Active Substance: GABAPENTIN
     Dosage: 300 MG, 1X/DAY AT BEDTIME (USES RARELY)
  7. UNSPECIFIED INGREDIENT [Concomitant]
     Active Substance: UNSPECIFIED INGREDIENT
     Dosage: 1/0.02 MG
  8. LEXAPRO [Concomitant]
     Active Substance: ESCITALOPRAM OXALATE
     Dosage: 10 MG
  9. NORETHINDRONE ACETATE [Concomitant]
     Active Substance: NORETHINDRONE ACETATE

REACTIONS (11)
  - Initial insomnia [Recovering/Resolving]
  - Hypoaesthesia [Unknown]
  - Euphoric mood [Recovering/Resolving]
  - Gait disturbance [Unknown]
  - Retching [Unknown]
  - Panic disorder [Recovering/Resolving]
  - Nausea [Unknown]
  - Paraesthesia [Recovering/Resolving]
  - Dizziness [Unknown]
  - Hyperhidrosis [Unknown]
  - Somnolence [Unknown]

NARRATIVE: CASE EVENT DATE: 20230101
